FAERS Safety Report 8585656-4 (Version None)
Quarter: 2012Q3

REPORT INFORMATION
  Report Type: 
  Country: None (occurrence: None)
  Receive Date: 20120810
  Receipt Date: 20120808
  Transmission Date: 20120928
  Serious: Yes (Death, Life-Threatening, Hospitalization)
  Sender: FDA-Public Use
  Company Number: DE-B.I. PHARMACEUTICALS,INC./RIDGEFIELD-2012-DE-01240DE

PATIENT
  Sex: Female
  Weight: 60 kg

DRUGS (8)
  1. ALLOPURINOL [Concomitant]
     Dates: start: 20120227
  2. FERROUS SULFATE TAB [Concomitant]
     Dates: start: 20120402
  3. PRADAXA [Suspect]
     Indication: ANTICOAGULANT THERAPY
     Dosage: 220 MG
     Route: 048
  4. METOPROLOL TARTRATE [Concomitant]
     Dates: start: 20120103
  5. HYDROCUTAN [Concomitant]
     Dosage: 20 G
     Dates: start: 20120228
  6. THORASEMID [Concomitant]
     Dates: start: 20120326
  7. LOSARTAN POTASSIUM [Concomitant]
     Dates: start: 20120402
  8. PANTOPRAZOLE [Concomitant]
     Dates: start: 20120402

REACTIONS (4)
  - RENAL IMPAIRMENT [None]
  - DEATH [None]
  - CARDIAC FAILURE [None]
  - DEHYDRATION [None]
